FAERS Safety Report 7801371-6 (Version None)
Quarter: 2011Q4

REPORT INFORMATION
  Report Type: 
  Country: None (occurrence: None)
  Receive Date: 20111007
  Receipt Date: 20111003
  Transmission Date: 20120403
  Serious: Yes (Death)
  Sender: FDA-Public Use
  Company Number: US-PFIZER INC-2011236550

PATIENT
  Age: 19 Year
  Sex: Female

DRUGS (4)
  1. DIAZEPAM [Suspect]
     Dosage: UNK
  2. TRAZODONE HCL [Suspect]
     Dosage: UNK
  3. TEMAZEPAM [Suspect]
     Dosage: UNK
  4. OXYCODONE HCL [Suspect]
     Dosage: UNK

REACTIONS (2)
  - MULTIPLE DRUG OVERDOSE ACCIDENTAL [None]
  - DEATH [None]
